FAERS Safety Report 7918919-3 (Version None)
Quarter: 2011Q4

REPORT INFORMATION
  Report Type: 
  Country: None (occurrence: None)
  Receive Date: 20111116
  Receipt Date: 20111109
  Transmission Date: 20120403
  Serious: Yes (Other)
  Sender: FDA-Public Use
  Company Number: PHHY2011BR100114

PATIENT
  Age: 46 Year
  Sex: Male

DRUGS (1)
  1. ZOLEDRONIC [Suspect]
     Indication: BONE DISORDER
     Dosage: 4 MG, QMO

REACTIONS (6)
  - INFECTION [None]
  - ORAL DISCOMFORT [None]
  - OSTEOMYELITIS CHRONIC [None]
  - OSTEONECROSIS OF JAW [None]
  - ORAL PAIN [None]
  - EXPOSED BONE IN JAW [None]
